FAERS Safety Report 15696692 (Version 1)
Quarter: 2018Q4

REPORT INFORMATION
  Report Type: Spontaneous
  Country: US (occurrence: US)
  Receive Date: 20181206
  Receipt Date: 20181206
  Transmission Date: 20190205
  Serious: No
  Sender: FDA-Public Use
  Company Number: US-3M HEALTH CARE-MPUN-B62LLJ

PATIENT

DRUGS (1)
  1. SOLUPREP [Suspect]
     Active Substance: CHLORHEXIDINE GLUCONATE\ISOPROPYL ALCOHOL
     Indication: PREOPERATIVE CARE
     Dosage: 26 ML MILLILITRE(S), SINGLE USE
     Route: 061

REACTIONS (1)
  - Product deposit [Unknown]

NARRATIVE: CASE EVENT DATE: 20181030
